FAERS Safety Report 9740110 (Version 2)
Quarter: 2013Q4

REPORT INFORMATION
  Report Type: Report from Study
  Country: NL (occurrence: NL)
  Receive Date: 20131209
  Receipt Date: 20131209
  Transmission Date: 20140711
  Serious: Yes (Hospitalization)
  Sender: FDA-Public Use
  Company Number: NL-BAYER-200827225GPV

PATIENT
  Age: 42 Year
  Sex: Male

DRUGS (2)
  1. BETAFERON [Suspect]
     Indication: MULTIPLE SCLEROSIS
     Dosage: BETAFERON STOPPED PREVENTIVELY
     Route: 058
     Dates: start: 200704, end: 20080626
  2. BETAFERON [Suspect]
     Indication: MULTIPLE SCLEROSIS
     Route: 058
     Dates: start: 20080924

REACTIONS (1)
  - Bile duct stone [Recovered/Resolved]
